FAERS Safety Report 13628461 (Version 1)
Quarter: 2017Q2

REPORT INFORMATION
  Report Type: Spontaneous
  Country: US (occurrence: US)
  Receive Date: 20170607
  Receipt Date: 20170607
  Transmission Date: 20170830
  Serious: No
  Sender: FDA-Public Use
  Company Number: US-TARO-2017TAR00213

PATIENT
  Age: 1 Year
  Sex: Male
  Weight: 13.61 kg

DRUGS (1)
  1. CHILDRENS CETIRIZINE HYDROCHLORIDE SUGAR FREE GRAPE [Suspect]
     Active Substance: CETIRIZINE HYDROCHLORIDE
     Dosage: UNK
     Route: 048
     Dates: start: 20170329, end: 20170329

REACTIONS (3)
  - Drug administered to patient of inappropriate age [Recovered/Resolved]
  - Fatigue [Recovered/Resolved]
  - Accidental exposure to product by child [Recovered/Resolved]

NARRATIVE: CASE EVENT DATE: 20170329
